FAERS Safety Report 24558408 (Version 1)
Quarter: 2024Q4

REPORT INFORMATION
  Report Type: Spontaneous
  Country: GB (occurrence: GB)
  Receive Date: 20241029
  Receipt Date: 20241029
  Transmission Date: 20250114
  Serious: Yes (Disabling, Other)
  Sender: ACCORD
  Company Number: None

PATIENT
  Sex: Male

DRUGS (1)
  1. FINASTERIDE [Suspect]
     Active Substance: FINASTERIDE
     Indication: Alopecia
     Dosage: 1MG DAILY

REACTIONS (6)
  - Brain fog [Recovering/Resolving]
  - Muscular weakness [Recovering/Resolving]
  - Insomnia [Recovered/Resolved]
  - Depression [Recovered/Resolved]
  - Cognitive disorder [Recovering/Resolving]
  - Amnesia [Recovered/Resolved]
